FAERS Safety Report 11653584 (Version 1)
Quarter: 2015Q4

REPORT INFORMATION
  Report Type: Spontaneous
  Country: ES (occurrence: ES)
  Receive Date: 20151022
  Receipt Date: 20151022
  Transmission Date: 20160304
  Serious: Yes (Hospitalization)
  Sender: FDA-Public Use
  Company Number: ES-SA-2015SA163561

PATIENT
  Age: 88 Year
  Sex: Female

DRUGS (9)
  1. METAMIZOLE [Concomitant]
     Active Substance: METAMIZOLE
     Dosage: 1-0-0
  2. GABAPENTIN. [Concomitant]
     Active Substance: GABAPENTIN
     Dosage: DOSE: 0-1-0
  3. MIRTAZAPINE. [Suspect]
     Active Substance: MIRTAZAPINE
     Indication: DEPRESSION
     Dosage: 15 MG 1 VEZ AL DIA
     Route: 048
     Dates: start: 201310
  4. COAPROVEL [Suspect]
     Active Substance: HYDROCHLOROTHIAZIDE\IRBESARTAN
     Indication: HYPERTENSION
     Dosage: 150 MG, 1 VEZ AL DIA
     Route: 048
     Dates: start: 201310, end: 20150814
  5. ALLOPURINOL. [Concomitant]
     Active Substance: ALLOPURINOL
     Dosage: DOSE: 0-1-0
  6. ORFIDAL [Concomitant]
     Active Substance: LORAZEPAM
     Dosage: DOSE: 1-1 / 2-1 / 2
  7. OMEPRAZOLE. [Concomitant]
     Active Substance: OMEPRAZOLE
     Dosage: DOSE: 1-0-0
  8. HIDROFEROL [Concomitant]
     Active Substance: CALCIFEDIOL
  9. PARACETAMOL [Concomitant]
     Active Substance: ACETAMINOPHEN
     Dosage: 0-1-1

REACTIONS (3)
  - Asthenia [Recovered/Resolved]
  - Inappropriate antidiuretic hormone secretion [Recovered/Resolved]
  - Somnolence [Recovered/Resolved]

NARRATIVE: CASE EVENT DATE: 20150808
